FAERS Safety Report 4971609-1 (Version None)
Quarter: 2006Q2

REPORT INFORMATION
  Report Type: 
  Country: None (occurrence: None)
  Receive Date: 20060407
  Receipt Date: 20060328
  Transmission Date: 20061013
  Serious: Yes (Hospitalization)
  Sender: FDA-Public Use
  Company Number: 2006042400

PATIENT
  Age: 96 Year
  Sex: Male
  Weight: 58.0604 kg

DRUGS (4)
  1. LUDEN'S (MENTHOL, PECTIN) [Suspect]
     Indication: COUGH
     Dosage: 4 OR MORE PER DAY DAILY, ORAL
     Route: 048
  2. ATORVASTATIN CALCIUM [Concomitant]
  3. ASPIRIN [Concomitant]
  4. VALSARTAN [Concomitant]

REACTIONS (1)
  - DYSPHAGIA [None]
